FAERS Safety Report 7994571-6 (Version None)
Quarter: 2011Q4

REPORT INFORMATION
  Report Type: 
  Country: None (occurrence: None)
  Receive Date: 20111220
  Receipt Date: 20111207
  Transmission Date: 20120403
  Serious: Yes (Other)
  Sender: FDA-Public Use
  Company Number: JP-PFIZER INC-2011307499

PATIENT
  Age: 55 Year
  Sex: Male
  Weight: 75 kg

DRUGS (5)
  1. FLUOROURACIL [Concomitant]
     Indication: COLON CANCER
     Dosage: UNK
     Route: 040
  2. CAMPTOSAR [Suspect]
     Indication: COLON CANCER
     Dosage: UNK
     Route: 041
  3. AVASTIN [Concomitant]
     Indication: COLON CANCER
     Dosage: UNK
     Route: 041
  4. LEVOLEUCOVORIN CALCIUM [Suspect]
     Indication: COLON CANCER
     Dosage: UNK
     Route: 041
  5. FLUOROURACIL [Concomitant]
     Dosage: UNK
     Route: 041

REACTIONS (1)
  - HEPATIC FAILURE [None]
